FAERS Safety Report 6197503-9 (Version None)
Quarter: 2009Q2

REPORT INFORMATION
  Report Type: 
  Country: None (occurrence: None)
  Receive Date: 20090521
  Receipt Date: 20090511
  Transmission Date: 20091009
  Serious: Yes (Hospitalization, Disabling)
  Sender: FDA-Public Use
  Company Number: US-JNJFOC-20090304433

PATIENT
  Sex: Male
  Weight: 77.11 kg

DRUGS (2)
  1. REMICADE [Suspect]
     Indication: CROHN'S DISEASE
     Route: 042
  2. HEART MEDICATIONS [Concomitant]

REACTIONS (4)
  - BLINDNESS [None]
  - CARDIAC DISORDER [None]
  - EYE INFECTION [None]
  - STAPHYLOCOCCAL INFECTION [None]
